FAERS Safety Report 7718683-7 (Version None)
Quarter: 2011Q3

REPORT INFORMATION
  Report Type: 
  Country: None (occurrence: None)
  Receive Date: 20110830
  Receipt Date: 20110824
  Transmission Date: 20111222
  Serious: Yes (Hospitalization, Other)
  Sender: FDA-Public Use
  Company Number: CH-ROXANE LABORATORIES, INC.-2011-RO-01185RO

PATIENT
  Age: 64 Year
  Sex: Female

DRUGS (16)
  1. ATIVAN [Suspect]
     Indication: DEPRESSION
  2. MIRTAZAPINE [Suspect]
     Indication: DEPRESSION
     Dosage: 60 MG
  3. DYDROGESTERONE TAB [Concomitant]
     Indication: MENOPAUSE
     Dosage: 5 MG
  4. ATORVASTATIN [Concomitant]
     Indication: HYPERLIPIDAEMIA
  5. LISINOPRIL [Concomitant]
     Indication: HYPERTENSION
  6. ATIVAN [Suspect]
     Indication: WITHDRAWAL SYNDROME
     Dosage: 3 MG
  7. 17 BETA-ESTRADIOL [Concomitant]
     Indication: MENOPAUSE
     Dosage: 1 MG
  8. 17 BETA-ESTRADIOL [Concomitant]
     Indication: HORMONE REPLACEMENT THERAPY
  9. PANTOPRAZOLE [Concomitant]
     Indication: GASTROOESOPHAGEAL REFLUX DISEASE
  10. SALICYLATE [Concomitant]
     Indication: CARDIOVASCULAR EVENT PROPHYLAXIS
  11. LEVOTHYROXINE SODIUM [Concomitant]
     Indication: HYPOTHYROIDISM
  12. DIAZEPAM [Suspect]
     Indication: DRUG DEPENDENCE
     Dosage: 15 MG
  13. VENLAFAXINE HYDROCHLORIDE [Suspect]
     Indication: DEPRESSION
     Dosage: 150 MG
  14. FELODIPINE [Concomitant]
     Indication: HYPERTENSION
  15. DYDROGESTERONE TAB [Concomitant]
     Indication: HORMONE REPLACEMENT THERAPY
  16. METOPROLOL TARTRATE [Concomitant]
     Indication: HYPERTENSION

REACTIONS (4)
  - DEMENTIA [None]
  - WITHDRAWAL SYNDROME [None]
  - DELIRIUM [None]
  - DRUG DEPENDENCE [None]
